FAERS Safety Report 4455971-4 (Version None)
Quarter: 2004Q3

REPORT INFORMATION
  Report Type: 
  Country: None (occurrence: None)
  Receive Date: 20040922
  Receipt Date: 20040721
  Transmission Date: 20050211
  Serious: Yes (Other)
  Sender: FDA-Public Use
  Company Number: ZA-GLAXOSMITHKLINE-B0340378A

PATIENT
  Age: 68 Year
  Sex: Female
  Weight: 77 kg

DRUGS (5)
  1. AUGMENTIN [Suspect]
     Indication: OTITIS MEDIA
     Route: 065
     Dates: start: 20040201, end: 20040201
  2. RENITEC [Concomitant]
     Dosage: 10MG IN THE MORNING
  3. PANTOLOC [Concomitant]
     Dosage: 40MG IN THE MORNING
  4. ELTROXIN [Concomitant]
     Dosage: .1MG IN THE MORNING
  5. PREMARIN [Concomitant]

REACTIONS (13)
  - ALANINE AMINOTRANSFERASE INCREASED [None]
  - ASPARTATE AMINOTRANSFERASE INCREASED [None]
  - CHOLESTASIS [None]
  - CHROMATURIA [None]
  - DISCOMFORT [None]
  - FAECES PALE [None]
  - FATIGUE [None]
  - GAMMA-GLUTAMYLTRANSFERASE INCREASED [None]
  - HYPERHIDROSIS [None]
  - JAUNDICE [None]
  - NAUSEA [None]
  - STRESS SYMPTOMS [None]
  - VOMITING [None]
